FAERS Safety Report 6164386-2 (Version None)
Quarter: 2009Q2

REPORT INFORMATION
  Report Type: 
  Country: None (occurrence: None)
  Receive Date: 20090421
  Receipt Date: 20090407
  Transmission Date: 20091009
  Serious: Yes (Hospitalization, Other)
  Sender: FDA-Public Use
  Company Number: 09-137

PATIENT
  Age: 41 Year
  Sex: Female

DRUGS (9)
  1. ALEVE [Suspect]
     Indication: TOOTHACHE
     Dosage: 440 MG, DAILY, ORAL
     Route: 048
     Dates: start: 20090225
  2. ALEVE [Suspect]
     Indication: TOOTHACHE
     Dosage: 440 MG, DAILY, ORAL
     Route: 048
     Dates: start: 20090226
  3. FLAXSEED OIL [Concomitant]
  4. GARLIC [Concomitant]
  5. LECITHIN [Concomitant]
  6. ASCORBIC ACID [Concomitant]
  7. CLOZAPINE [Concomitant]
  8. SYNTHROID [Concomitant]
  9. PAROXETINE HYDROCHLORIDE [Concomitant]

REACTIONS (15)
  - CONTUSION [None]
  - CONVULSION [None]
  - DIZZINESS [None]
  - EPISTAXIS [None]
  - FALL [None]
  - GINGIVAL BLEEDING [None]
  - GROIN PAIN [None]
  - HEADACHE [None]
  - OEDEMA PERIPHERAL [None]
  - PAIN IN JAW [None]
  - PLATELET COUNT ABNORMAL [None]
  - PROTEIN TOTAL ABNORMAL [None]
  - SKIN DISCOLOURATION [None]
  - URINARY INCONTINENCE [None]
  - VAGINAL HAEMORRHAGE [None]
